FAERS Safety Report 8112089-7 (Version None)
Quarter: 2012Q1

REPORT INFORMATION
  Report Type: 
  Country: None (occurrence: None)
  Receive Date: 20120203
  Receipt Date: 20120123
  Transmission Date: 20120608
  Serious: Yes (Other)
  Sender: FDA-Public Use
  Company Number: US-BAYER-2012-007545

PATIENT
  Age: 71 Year
  Sex: Male

DRUGS (3)
  1. ASPIRIN [Suspect]
  2. PLAVIX [Suspect]
     Dosage: 75 MG, UNK
     Route: 048
     Dates: start: 20110601
  3. PROTONIX [Concomitant]

REACTIONS (6)
  - GASTRIC DISORDER [None]
  - GINGIVAL BLEEDING [None]
  - EPISTAXIS [None]
  - RENAL DISORDER [None]
  - GASTROOESOPHAGEAL REFLUX DISEASE [None]
  - FAECES DISCOLOURED [None]
